FAERS Safety Report 24212184 (Version 1)
Quarter: 2024Q3

REPORT INFORMATION
  Report Type: Spontaneous
  Country: US (occurrence: US)
  Receive Date: 20240815
  Receipt Date: 20240815
  Transmission Date: 20241016
  Serious: No
  Sender: ABBVIE
  Company Number: US-ABBVIE-5877895

PATIENT
  Age: 47 Year
  Sex: Female

DRUGS (2)
  1. BOTOX COSMETIC [Suspect]
     Active Substance: ONABOTULINUMTOXINA
     Indication: Skin wrinkling
     Dosage: TIME INTERVAL: AS NECESSARY
     Route: 030
     Dates: start: 20240722, end: 20240722
  2. CLARITIN [Concomitant]
     Active Substance: LORATADINE
     Indication: Seasonal allergy

REACTIONS (3)
  - Injection site discomfort [Not Recovered/Not Resolved]
  - Tension headache [Not Recovered/Not Resolved]
  - Visual impairment [Not Recovered/Not Resolved]

NARRATIVE: CASE EVENT DATE: 20240701
